FAERS Safety Report 13110309 (Version 1)
Quarter: 2017Q1

REPORT INFORMATION
  Report Type: Spontaneous
  Country: US (occurrence: US)
  Receive Date: 20170112
  Receipt Date: 20170112
  Transmission Date: 20170428
  Serious: Yes (Death)
  Sender: FDA-Public Use
  Company Number: US-PERRIGO-17US000264

PATIENT
  Age: 51 Year
  Sex: Female

DRUGS (14)
  1. ALPHA AND BETA BLOCKING AGENTS [Suspect]
     Active Substance: UNSPECIFIED INGREDIENT
     Indication: COMPLETED SUICIDE
     Dosage: UNKNOWN, UNKNOWN
     Route: 048
  2. CARISOPRODOL. [Suspect]
     Active Substance: CARISOPRODOL
     Indication: COMPLETED SUICIDE
     Dosage: UNKNOWN, UNKNOWN
     Route: 048
  3. TRAZODONE [Suspect]
     Active Substance: TRAZODONE HYDROCHLORIDE
     Indication: COMPLETED SUICIDE
     Dosage: UNKNOWN, UNKNOWN
     Route: 048
  4. FUROSEMIDE. [Suspect]
     Active Substance: FUROSEMIDE
     Indication: COMPLETED SUICIDE
     Dosage: UNKNOWN, UNKNOWN
     Route: 048
  5. POTASSIUM CHLORIDE. [Suspect]
     Active Substance: POTASSIUM CHLORIDE
     Indication: COMPLETED SUICIDE
     Dosage: UNKNOWN, UNKNOWN
     Route: 048
  6. LINACLOTIDE [Suspect]
     Active Substance: LINACLOTIDE
     Indication: COMPLETED SUICIDE
     Dosage: UNKNOWN, UNKNOWN
     Route: 048
  7. AMITRIPTYLINE [Suspect]
     Active Substance: AMITRIPTYLINE
     Indication: COMPLETED SUICIDE
     Dosage: UNKNOWN, UNKNOWN
     Route: 048
  8. DICYCLOMINE                        /00068601/ [Suspect]
     Active Substance: DICYCLOMINE HYDROCHLORIDE
     Indication: COMPLETED SUICIDE
     Dosage: UNKNOWN, UNKNOWN
     Route: 048
  9. OMEPRAZOLE. [Suspect]
     Active Substance: OMEPRAZOLE
     Indication: COMPLETED SUICIDE
     Dosage: UNKNOWN, UNKNOWN
     Route: 048
  10. QUETIAPINE. [Suspect]
     Active Substance: QUETIAPINE
     Indication: COMPLETED SUICIDE
     Dosage: UNKNOWN, UNKNOWN
     Route: 048
  11. ALL OTHER THERAPEUTIC PRODUCTS [Suspect]
     Active Substance: UNSPECIFIED INGREDIENT
     Indication: COMPLETED SUICIDE
     Dosage: UNKNOWN, UNKNOWN
     Route: 048
  12. BENZODIAZEPINE DERIVATIVES [Suspect]
     Active Substance: BENZODIAZEPINE
     Indication: COMPLETED SUICIDE
     Dosage: UNKNOWN, UNKNOWN
     Route: 048
  13. METOPROLOL. [Suspect]
     Active Substance: METOPROLOL
     Indication: COMPLETED SUICIDE
     Dosage: UNKNOWN, UNKNOWN
     Route: 048
  14. GABAPENTIN. [Suspect]
     Active Substance: GABAPENTIN
     Indication: COMPLETED SUICIDE
     Dosage: UNKNOWN, UNKNOWN
     Route: 048

REACTIONS (2)
  - Death [Fatal]
  - Completed suicide [None]
